FAERS Safety Report 12395302 (Version 1)
Quarter: 2016Q2

REPORT INFORMATION
  Report Type: Spontaneous
  Country: US (occurrence: US)
  Receive Date: 20160523
  Receipt Date: 20160523
  Transmission Date: 20160815
  Serious: Yes (Other)
  Sender: FDA-Public Use
  Company Number: US-GLAXOSMITHKLINE-US2016070938

PATIENT
  Age: 72 Year
  Sex: Female

DRUGS (1)
  1. FLONASE [Suspect]
     Active Substance: FLUTICASONE PROPIONATE
     Indication: HYPERSENSITIVITY
     Dosage: 1 DOSE
     Dates: start: 2004

REACTIONS (3)
  - Paralysis [Recovered/Resolved]
  - Aphasia [Recovered/Resolved]
  - Anaphylactic shock [Recovered/Resolved]
